FAERS Safety Report 4641154-1 (Version None)
Quarter: 2005Q2

REPORT INFORMATION
  Report Type: 
  Country: None (occurrence: None)
  Receive Date: 20050421
  Receipt Date: 20050411
  Transmission Date: 20051028
  Serious: Yes (Other)
  Sender: FDA-Public Use
  Company Number: US-BRISTOL-MYERS SQUIBB COMPANY-12937926

PATIENT
  Age: 37 Year
  Sex: Female

DRUGS (1)
  1. SERZONE [Suspect]
     Dates: start: 19980401, end: 20000901

REACTIONS (3)
  - ANAEMIA [None]
  - HEPATIC NEOPLASM [None]
  - LIVER DISORDER [None]
